FAERS Safety Report 9421029 (Version 2)
Quarter: 2014Q1

REPORT INFORMATION
  Report Type: Spontaneous
  Country: US (occurrence: US)
  Receive Date: 20130725
  Receipt Date: 20140130
  Transmission Date: 20141002
  Serious: Yes (Hospitalization)
  Sender: FDA-Public Use
  Company Number: US-B.I. PHARMACEUTICALS,INC./RIDGEFIELD-2013-BI-16277BP

PATIENT
  Age: 80 Year
  Sex: Female
  Weight: 58.51 kg

DRUGS (11)
  1. PRADAXA [Suspect]
     Indication: CEREBROVASCULAR ACCIDENT PROPHYLAXIS
     Dosage: 300 MG
     Dates: start: 20110222, end: 20120101
  2. PRADAXA [Suspect]
     Indication: THROMBOSIS PROPHYLAXIS
  3. PRADAXA [Suspect]
     Indication: ATRIAL FIBRILLATION
  4. ALPHAGAN [Concomitant]
     Route: 031
  5. LASIX [Concomitant]
     Dosage: 60 MG
  6. SIMVASTATIN [Concomitant]
     Dosage: 40 MG
  7. LEVOTHYROXINE [Concomitant]
     Dosage: 12.5 MCG
  8. METOPROLOL [Concomitant]
  9. DILTIAZEM [Concomitant]
     Dosage: 180 MG
  10. KLOR-CON [Concomitant]
     Dosage: 40 MEQ
  11. FLOVENT [Concomitant]
     Route: 055

REACTIONS (2)
  - Gastrointestinal haemorrhage [Unknown]
  - Anaemia [Unknown]
